FAERS Safety Report 16471538 (Version 2)
Quarter: 2019Q3

REPORT INFORMATION
  Report Type: Spontaneous
  Country: CN (occurrence: CN)
  Receive Date: 20190624
  Receipt Date: 20190712
  Transmission Date: 20191004
  Serious: Yes (Hospitalization, Other)
  Sender: FDA-Public Use
  Company Number: CN-009507513-1906CHN009034

PATIENT
  Age: 34 Year
  Sex: Female

DRUGS (4)
  1. PUREGON [FOLLITROPIN BETA] [Suspect]
     Active Substance: FOLLITROPIN
     Indication: CONTROLLED OVARIAN STIMULATION
     Dosage: AFTER 16 DAYS? DOWN-REGULATION
     Route: 058
  2. DIPHERELINE (TRIPTORELIN PAMOATE) [Suspect]
     Active Substance: TRIPTORELIN PAMOATE
     Dosage: 1.2 MILLIGRAM, ON DAY 16 OF TAKING MARVELON
     Route: 030
  3. GONADOTROPIN, CHORIONIC [Suspect]
     Active Substance: CHORIOGONADOTROPIN ALFA
     Dosage: 5.000 IU
  4. MARVELON [Suspect]
     Active Substance: DESOGESTREL\ETHINYL ESTRADIOL
     Indication: IN VITRO FERTILISATION
     Dosage: FROM DAY 5 OF THE PREVIOUS CYCLE
     Route: 048

REACTIONS (4)
  - Maternal exposure before pregnancy [Recovered/Resolved]
  - Off label use [Unknown]
  - Ovarian hyperstimulation syndrome [Recovering/Resolving]
  - Ovarian enlargement [Recovering/Resolving]
